FAERS Safety Report 9250597 (Version 1)
Quarter: 2013Q1

REPORT INFORMATION
  Report Type: Spontaneous
  Country: US (occurrence: None)
  Receive Date: 20130305
  Receipt Date: 20130305
  Transmission Date: 20140127
  Serious: Yes (Other)
  Sender: FDA-Public Use
  Company Number: 163-21880-12062448

PATIENT
  Age: 75 Year
  Sex: Female
  Weight: 56.7 kg

DRUGS (11)
  1. REVLIMID (LENALIDOMIDE) [Suspect]
     Indication: MYELODYSPLASTIC SYNDROME
     Route: 048
     Dates: start: 201205
  2. AMLODIPINE BESYLATE (AMLODIPINE BESILATE) [Concomitant]
  3. DONEPEZIL HCL (DONEPEZIL HYDROCHLORIDE) [Concomitant]
  4. FENOFIBRATE [Concomitant]
  5. HYDROCHLOROTHIAZIDE (HYDROCHLOROTHIAZIDE) [Concomitant]
  6. LOSARTAN POTASSIUM (LOSARTAN POTASSIUM) [Concomitant]
  7. METOPROLOL TARTRATE [Concomitant]
  8. OMEPRAZOLE (OMEPRAZOLE) [Concomitant]
  9. OXYBUTYNIN CHLORIDE [Concomitant]
  10. PROCRIT [Concomitant]
  11. VITAMIN D (ERGOCALCIFEROL) [Concomitant]

REACTIONS (3)
  - White blood cell count decreased [None]
  - Haemoglobin decreased [None]
  - Thrombocytopenia [None]
